FAERS Safety Report 8802178 (Version 2)
Quarter: 2015Q1

REPORT INFORMATION
  Report Type: Report from Study
  Country: US (occurrence: US)
  Receive Date: 20120921
  Receipt Date: 20150316
  Transmission Date: 20150721
  Serious: Yes (Death, Hospitalization)
  Sender: FDA-Public Use
  Company Number: US-ROCHE-1123506

PATIENT
  Sex: Female
  Weight: 73.55 kg

DRUGS (12)
  1. AVASTIN [Suspect]
     Active Substance: BEVACIZUMAB
     Indication: BRAIN NEOPLASM MALIGNANT
     Dosage: THERAPY DATES: 29/OCT/2008, 11/DEC/2008, 31/DEC/2008, 08/JAN/2009,  21/JAN/2009, 19/FEB/2009
     Route: 042
     Dates: start: 20081008
  2. KYTRIL [Concomitant]
     Active Substance: GRANISETRON HYDROCHLORIDE
     Dosage: THERAPY DATES: 31/DEC/2008, 08/JAN/2009, 21/JAN/2009, 03/DEC/2008, 11/DEC/2008, 16/OCT/2008, 22/OCT/
     Route: 042
  3. COUMADIN [Concomitant]
     Active Substance: WARFARIN SODIUM
     Route: 065
  4. KEPPRA [Concomitant]
     Active Substance: LEVETIRACETAM
  5. AVASTIN [Suspect]
     Active Substance: BEVACIZUMAB
     Indication: GLIOBLASTOMA MULTIFORME
  6. CPT-11 [Concomitant]
     Active Substance: IRINOTECAN
     Dosage: THERAPY DATES: 31/DEC/2008, 08/JAN/2009, 21/JAN/2009, 03/DEC/2008, 11/DEC/2008, 16/OCT/2008, 22/OCT/
     Route: 042
  7. DECADRON [Concomitant]
     Active Substance: DEXAMETHASONE
     Dosage: THERAPY DATES: 31/DEC/2008, 08/JAN/2009, 21/JAN/2009, 03/DEC/2008, 11/DEC/2008, 16/OCT/2008, 22/OCT/
     Route: 042
  8. VALIUM [Concomitant]
     Active Substance: DIAZEPAM
  9. COUMADIN [Concomitant]
     Active Substance: WARFARIN SODIUM
     Route: 065
  10. ATROPINE [Concomitant]
     Active Substance: ATROPINE
     Dosage: THERAPY DATES: 31/DEC/2008, 08/JAN/2009, 21/JAN/2009, 03/DEC/2008, 11/DEC/2008, 16/OCT/2008, 22/OCT/
     Route: 042
  11. DILANTIN [Concomitant]
     Active Substance: PHENYTOIN
     Route: 048
  12. NORMAL SALINE [Concomitant]
     Active Substance: SODIUM CHLORIDE
     Route: 065

REACTIONS (16)
  - Contusion [Unknown]
  - Diarrhoea [Unknown]
  - Stomatitis [Unknown]
  - Hypoaesthesia [Unknown]
  - Neurotoxicity [Unknown]
  - Haemorrhoids [Unknown]
  - Cough [Unknown]
  - Decreased appetite [Unknown]
  - Rash [Unknown]
  - Dyspnoea [Unknown]
  - Constipation [Unknown]
  - Death [Fatal]
  - Off label use [Unknown]
  - Seizure [Unknown]
  - Back pain [Unknown]
  - Gait disturbance [Unknown]
